FAERS Safety Report 6412811-1 (Version None)
Quarter: 2009Q4

REPORT INFORMATION
  Report Type: 
  Country: None (occurrence: None)
  Receive Date: 20091023
  Receipt Date: 20091012
  Transmission Date: 20100525
  Serious: Yes (Hospitalization)
  Sender: FDA-Public Use
  Company Number: BE-ELI_LILLY_AND_COMPANY-BE200904001975

PATIENT
  Sex: Male
  Weight: 55 kg

DRUGS (11)
  1. ZYPREXA [Suspect]
     Indication: PSYCHOTIC DISORDER
     Dosage: 10 MG, DAILY (1/D)
     Route: 048
     Dates: start: 20080820, end: 20080904
  2. ZYPREXA [Suspect]
     Dosage: 10 MG, DAILY (1/D)
     Dates: start: 20090319, end: 20090402
  3. ETUMINE [Concomitant]
     Dosage: 20 MG, UNK
     Dates: end: 20080822
  4. CONCERTA [Concomitant]
     Indication: ATTENTION DEFICIT/HYPERACTIVITY DISORDER
     Dosage: 54 MG, DAILY (1/D)
     Route: 048
     Dates: start: 20080820
  5. FLUANXOL [Concomitant]
     Indication: SCHIZOPHRENIA
     Dosage: 3 MG, DAILY (1/D)
     Dates: start: 20081201
  6. OMEPRAZOLE [Concomitant]
     Indication: PEPTIC ULCER
     Dosage: 10 MG, DAILY (1/D)
  7. LEPONEX [Concomitant]
     Indication: SCHIZOPHRENIA
     Dosage: 100 MG, DAILY (1/D)
     Dates: start: 20081114, end: 20090305
  8. DIPIPERON [Concomitant]
     Dosage: 20 UNK, DAILY (1/D)
     Dates: end: 20080822
  9. SOLIAN [Concomitant]
     Dosage: 800 MG, UNKNOWN
     Dates: start: 20080918
  10. SOLIAN [Concomitant]
     Dosage: 400 MG, UNKNOWN
     Route: 065
  11. SOLIAN [Concomitant]
     Dosage: 200 MG, UNKNOWN
     Route: 065
     Dates: end: 20081201

REACTIONS (1)
  - NEUTROPENIA [None]
